FAERS Safety Report 9561178 (Version 2)
Quarter: 2014Q1

REPORT INFORMATION
  Report Type: Spontaneous
  Country: US (occurrence: US)
  Receive Date: 20130927
  Receipt Date: 20140325
  Transmission Date: 20141002
  Serious: No
  Sender: FDA-Public Use
  Company Number: US-BIOGENIDEC-2013BI057092

PATIENT
  Age: 59 Year
  Sex: Female

DRUGS (12)
  1. TECFIDERA [Suspect]
     Indication: MULTIPLE SCLEROSIS
     Dates: start: 20130529
  2. TECFIDERA [Suspect]
     Indication: MULTIPLE SCLEROSIS
     Route: 048
     Dates: start: 201305
  3. BACLOFEN [Concomitant]
  4. CITALOPRAM [Concomitant]
  5. DIOVAN [Concomitant]
  6. CALCIUM CARBONATE [Concomitant]
  7. ECOTRIN [Concomitant]
  8. VITAMIN D [Concomitant]
  9. DULOXETINE [Concomitant]
  10. SULFAMETHOXAZOLE [Concomitant]
  11. TRAMADOL [Concomitant]
  12. CYMBALTA [Concomitant]

REACTIONS (2)
  - Fatigue [Unknown]
  - Diarrhoea [Recovered/Resolved]
